FAERS Safety Report 22627431 (Version 1)
Quarter: 2023Q2

REPORT INFORMATION
  Report Type: Spontaneous
  Country: US (occurrence: US)
  Receive Date: 20230622
  Receipt Date: 20230622
  Transmission Date: 20230722
  Serious: Yes (Hospitalization)
  Sender: FDA-Public Use
  Company Number: US-PHARMING-PHAUS2023000439

PATIENT

DRUGS (1)
  1. RUCONEST [Suspect]
     Active Substance: HUMAN C1-ESTERASE INHIBITOR
     Indication: Hereditary angioedema
     Dosage: 3000 IU, WEEKLY AND PRN
     Route: 042
     Dates: start: 20190305

REACTIONS (4)
  - Hypertension [Unknown]
  - Fluid retention [Unknown]
  - Renal disorder [Unknown]
  - Intentional product use issue [Unknown]
